FAERS Safety Report 11014810 (Version 2)
Quarter: 2015Q2

REPORT INFORMATION
  Report Type: Spontaneous
  Country: US (occurrence: US)
  Receive Date: 20150412
  Receipt Date: 20150525
  Transmission Date: 20150821
  Serious: No
  Sender: FDA-Public Use
  Company Number: US-JNJFOC-20140400924

PATIENT
  Age: 64 Year
  Sex: Male
  Weight: 106.6 kg

DRUGS (4)
  1. TRAMADOL [Suspect]
     Active Substance: TRAMADOL
     Indication: PAIN
     Dosage: AS NEEDED
     Route: 048
     Dates: start: 201311
  2. ORENCIA [Suspect]
     Active Substance: ABATACEPT
     Indication: PAIN
     Dosage: AS NEEDED
     Route: 048
     Dates: start: 201311
  3. LIBRAX [Concomitant]
     Active Substance: CHLORDIAZEPOXIDE HYDROCHLORIDE\CLIDINIUM BROMIDE
     Indication: GASTRIC DISORDER
     Dosage: AS NEEDED
     Route: 048
  4. TRICOR [Concomitant]
     Active Substance: FENOFIBRATE
     Indication: BLOOD PRESSURE
     Dosage: AS NEEDED
     Route: 048
     Dates: start: 2002, end: 2014

REACTIONS (2)
  - Pain [Not Recovered/Not Resolved]
  - Weight decreased [Not Recovered/Not Resolved]

NARRATIVE: CASE EVENT DATE: 201311
